FAERS Safety Report 8436245-3 (Version None)
Quarter: 2012Q2

REPORT INFORMATION
  Report Type: 
  Country: None (occurrence: None)
  Receive Date: 20120614
  Receipt Date: 20120606
  Transmission Date: 20120825
  Serious: Yes (Hospitalization)
  Sender: FDA-Public Use
  Company Number: FR-ROCHE-647710

PATIENT
  Sex: Male
  Weight: 90 kg

DRUGS (2)
  1. AVASTIN [Suspect]
     Indication: RENAL CELL CARCINOMA
     Route: 042
     Dates: start: 20090427, end: 20090708
  2. ROFERON-A [Suspect]
     Indication: RENAL CELL CARCINOMA
     Route: 065
     Dates: start: 20090427, end: 20090629

REACTIONS (3)
  - CHOLELITHIASIS [None]
  - PULMONARY EMBOLISM [None]
  - NEOPLASM MALIGNANT [None]
